FAERS Safety Report 5842225-4 (Version None)
Quarter: 2008Q3

REPORT INFORMATION
  Report Type: 
  Country: None (occurrence: None)
  Receive Date: 20080812
  Receipt Date: 20080806
  Transmission Date: 20090109
  Serious: Yes (Other)
  Sender: FDA-Public Use
  Company Number: GR-AVENTIS-200817439GDDC

PATIENT
  Age: 57 Year
  Sex: Female

DRUGS (5)
  1. TAXOTERE [Suspect]
     Indication: BREAST CANCER
     Route: 042
     Dates: start: 20070712, end: 20070712
  2. ZOFRAN [Concomitant]
  3. ZANTAC [Concomitant]
  4. FENISTIL [Concomitant]
  5. DEXAMETHASONE [Concomitant]

REACTIONS (1)
  - HYPERGLYCAEMIA [None]
